FAERS Safety Report 19873718 (Version 1)
Quarter: 2021Q3

REPORT INFORMATION
  Report Type: Spontaneous
  Country: FR (occurrence: FR)
  Receive Date: 20210922
  Receipt Date: 20210922
  Transmission Date: 20211014
  Serious: Yes (Other)
  Sender: FDA-Public Use
  Company Number: FR-MYLANLABS-2021M1063989

PATIENT
  Age: 63 Year
  Sex: Male

DRUGS (3)
  1. APOKINON [Concomitant]
     Active Substance: APOMORPHINE
     Dosage: UNK
  2. LEVODOPA [Concomitant]
     Active Substance: LEVODOPA
     Dosage: UNK
  3. CLOZAPINE MYLAN [Suspect]
     Active Substance: CLOZAPINE
     Indication: PSYCHOTIC DISORDER
     Dosage: 1 DOSAGE FORM, QD
     Route: 048
     Dates: start: 20210318, end: 20210319

REACTIONS (1)
  - Oedema [Recovered/Resolved]

NARRATIVE: CASE EVENT DATE: 20210319
